FAERS Safety Report 4340580-8 (Version None)
Quarter: 2004Q2

REPORT INFORMATION
  Report Type: 
  Country: None (occurrence: None)
  Receive Date: 20040414
  Receipt Date: 20040329
  Transmission Date: 20050107
  Serious: Yes (Other)
  Sender: FDA-Public Use
  Company Number: 2004-BP-01963RO

PATIENT
  Age: 52 Year
  Sex: Female

DRUGS (7)
  1. LEUCOVORIN CALCIUM [Suspect]
     Indication: COLORECTAL CANCER
     Dosage: 75 MG PO
     Route: 048
     Dates: start: 20030617, end: 20030718
  2. LEUCOVORIN CALCIUM [Suspect]
     Indication: COLORECTAL CANCER
     Dosage: 75 MG PO
     Route: 048
     Dates: start: 20030805, end: 20030811
  3. UFT [Suspect]
     Indication: COLORECTAL CANCER
     Dosage: 5 CAPSULES DAILY PO; 4 CAPSULES DAILY, PO
     Route: 048
     Dates: start: 20030617, end: 20030718
  4. UFT [Suspect]
     Indication: COLORECTAL CANCER
     Dosage: 5 CAPSULES DAILY PO; 4 CAPSULES DAILY, PO
     Route: 048
     Dates: start: 20030806, end: 20030811
  5. CLOTIAZEPAM (CLOTIAZEPAM) [Concomitant]
  6. MARZULENE (AZULENE SODIUM SULFONATE) (SODIUM GUALENATE) [Concomitant]
  7. MECOBALAMIN (MECOBALAMIN) [Concomitant]

REACTIONS (7)
  - ALANINE AMINOTRANSFERASE INCREASED [None]
  - ASPARTATE AMINOTRANSFERASE INCREASED [None]
  - BLOOD BILIRUBIN INCREASED [None]
  - EOSINOPHIL COUNT INCREASED [None]
  - LIVER DISORDER [None]
  - MALAISE [None]
  - NAUSEA [None]
